FAERS Safety Report 13795242 (Version 3)
Quarter: 2018Q2

REPORT INFORMATION
  Report Type: Not Available
  Country: US (occurrence: US)
  Receive Date: 20170726
  Receipt Date: 20180510
  Transmission Date: 20180711
  Serious: No
  Sender: FDA-Public Use
  Company Number: US-NEUROCRINE BIOSCIENCES INC.-2017NBI00240

PATIENT
  Sex: Female
  Weight: 95.34 kg

DRUGS (2)
  1. INGREZZA [Suspect]
     Active Substance: VALBENAZINE
     Dosage: 40 MG IN MORNING AND 40 MG IN NIGHT
     Route: 048
     Dates: start: 201705
  2. INGREZZA [Suspect]
     Active Substance: VALBENAZINE
     Indication: TARDIVE DYSKINESIA
     Route: 048

REACTIONS (4)
  - Tremor [Recovered/Resolved]
  - Dystonia [Recovered/Resolved]
  - Tardive dyskinesia [Recovered/Resolved]
  - Pain in extremity [Recovered/Resolved]
